FAERS Safety Report 8775358 (Version 1)
Quarter: 2012Q4

REPORT INFORMATION
  Report Type: 
  Country: US (occurrence: US)
  Receive Date: 20120910
  Receipt Date: 20120910
  Transmission Date: 20130627
  Serious: No
  Sender: FDA-Public Use
  Company Number: US-ASTRAZENECA-2012SE60137

PATIENT
  Age: 85 Year
  Sex: Female

DRUGS (5)
  1. CRESTOR [Suspect]
     Indication: BLOOD CHOLESTEROL INCREASED
     Route: 048
     Dates: start: 20120513, end: 20120817
  2. CARDIZEM [Concomitant]
  3. PLAVIX [Concomitant]
  4. COUMADIN [Concomitant]
  5. NITRO [Concomitant]

REACTIONS (4)
  - Atrial fibrillation [Unknown]
  - Myalgia [Unknown]
  - Abdominal discomfort [Unknown]
  - Dizziness [Unknown]
